FAERS Safety Report 9237929 (Version 1)
Quarter: 2013Q1

REPORT INFORMATION
  Report Type: Spontaneous
  Country: US (occurrence: None)
  Receive Date: 20121107
  Receipt Date: 20121107
  Transmission Date: 20140127
  Serious: No
  Sender: FDA-Public Use
  Company Number: 2012HGS-003732

PATIENT
  Sex: Female

DRUGS (18)
  1. BENLYSTA [Suspect]
     Indication: SYSTEMIC LUPUS ERYTHEMATOSUS
     Dates: start: 20120523
  2. HYDROXYCHLOROQUINE [Concomitant]
  3. FOLIC ACID [Concomitant]
  4. VITAMIN D (ERGOCALCIFEROL) [Concomitant]
  5. CYMBALTA (DULOXETINE HYDROCHLORIDE) [Concomitant]
  6. FLEXERIL (CEFIXIME) (CEFIXIME) [Concomitant]
  7. ARAVA (LEFLUNOMIDE) (LEFLUNOMIDE) [Concomitant]
  8. TYLENOL (PANADEINE CO) (CODEINE PHOSPHATE, PARACETAMOL) [Concomitant]
  9. CALCIUM (CALCIUM) (CALCIUM) [Concomitant]
  10. HYDROCHLOROTHIAZIDE (HYDROCHLOROTHIAZIDE) (HYDROCHLOROTHIAZIDE) [Concomitant]
  11. ATENOLOL (ATELOLOL) (ATENOLOL) [Concomitant]
  12. CRESTOR (ROSUVASTATIN CALCIUM) (ROSUVASTATIN CALCIUM) [Concomitant]
  13. SYNTHROID (LEVOTHYROXINE SODIUM) (LEVOTHYROXINE SODIUM) [Concomitant]
  14. NEXIUM (ESOMEPRAZOLE MAGNESIUM) (ESOMEPRAZOLE SODIUM) [Concomitant]
  15. AMBEREN (AMBEREN) (GLYCINE, TOCOPHERYL  ACETATE, CALCIUM SUCCINATE, GLUTAMATE SODIUM, MAGNESIUM SUCCINATE, ZINC DIFUMARATE HYDRATE)ATE, CALCIUM [Concomitant]
  16. RANITIDINE (RANITIDINE) (RANITIDINE) [Concomitant]
  17. ISONIAZID (ISONIAZID (ISONIAZID) [Concomitant]
  18. MEGA RED FISH OIL (FISH OIL) (FISH OIL) [Concomitant]

REACTIONS (2)
  - Infusion related reaction [None]
  - Cough [None]
